FAERS Safety Report 25868588 (Version 1)
Quarter: 2025Q4

REPORT INFORMATION
  Report Type: Spontaneous
  Country: JP (occurrence: JP)
  Receive Date: 20251001
  Receipt Date: 20251001
  Transmission Date: 20260117
  Serious: Yes (Death)
  Sender: EMD SERONO INC
  Company Number: JP-Merck Healthcare KGaA-2025049077

PATIENT
  Age: 4 Decade
  Sex: Male

DRUGS (1)
  1. METFORMIN HYDROCHLORIDE [Suspect]
     Active Substance: METFORMIN HYDROCHLORIDE
     Indication: Diabetes mellitus

REACTIONS (2)
  - Death [Fatal]
  - Overdose [Fatal]
